FAERS Safety Report 17975424 (Version 5)
Quarter: 2020Q4

REPORT INFORMATION
  Report Type: Report from Study
  Country: MX (occurrence: MX)
  Receive Date: 20200702
  Receipt Date: 20201103
  Transmission Date: 20210113
  Serious: Yes (Other)
  Sender: FDA-Public Use
  Company Number: MX-UCBSA-2020020997

PATIENT
  Sex: Female

DRUGS (1)
  1. LACOSAMIDE. [Suspect]
     Active Substance: LACOSAMIDE
     Indication: EPILEPSY
     Dosage: 3.5 MILLILITER, 2X/DAY (BID)
     Route: 048

REACTIONS (4)
  - Hyperaesthesia teeth [Not Recovered/Not Resolved]
  - Tooth disorder [Unknown]
  - Mastication disorder [Not Recovered/Not Resolved]
  - Dental caries [Not Recovered/Not Resolved]
